FAERS Safety Report 5616406-9 (Version None)
Quarter: 2008Q1

REPORT INFORMATION
  Report Type: 
  Country: None (occurrence: None)
  Receive Date: 20080207
  Receipt Date: 20080130
  Transmission Date: 20080703
  Serious: Yes (Hospitalization, Other)
  Sender: FDA-Public Use
  Company Number: PT-JNJFOC-20071105562

PATIENT
  Age: 50 Year
  Sex: Male

DRUGS (3)
  1. INFLIXIMAB [Suspect]
     Indication: CROHN'S DISEASE
     Dosage: 3 INFUSIONS ON UNSPECIFIED DATES IN 2005
     Route: 042
  2. AZATHIOPRINE [Concomitant]
  3. CORTICOSTEROIDS [Concomitant]

REACTIONS (3)
  - HOSPITALISATION [None]
  - PYREXIA [None]
  - TUBERCULOSIS [None]
